FAERS Safety Report 8533660-4 (Version None)
Quarter: 2012Q3

REPORT INFORMATION
  Report Type: 
  Country: None (occurrence: None)
  Receive Date: 20120724
  Receipt Date: 20120717
  Transmission Date: 20120928
  Serious: No
  Sender: FDA-Public Use
  Company Number: US-PFIZER INC-2012092174

PATIENT
  Sex: Female

DRUGS (1)
  1. INLYTA [Suspect]
     Indication: RENAL CANCER
     Dosage: 1 MG, 2X/DAY (TAKE TWO (1 MG) TABLETS BY MOUTH TWICE A DAY)
     Route: 048
     Dates: start: 20120521

REACTIONS (2)
  - DISEASE PROGRESSION [None]
  - RENAL CANCER [None]
